FAERS Safety Report 19327054 (Version 1)
Quarter: 2021Q2

REPORT INFORMATION
  Report Type: Spontaneous
  Country: FR (occurrence: FR)
  Receive Date: 20210528
  Receipt Date: 20210528
  Transmission Date: 20210717
  Serious: Yes (Hospitalization, Other)
  Sender: FDA-Public Use
  Company Number: FR-VELOXIS PHARMACEUTICALS-2021VELFR-000358

PATIENT
  Age: 47 Year
  Sex: Male

DRUGS (4)
  1. ENVARSUS XR [Suspect]
     Active Substance: TACROLIMUS
     Indication: IMMUNOSUPPRESSANT DRUG THERAPY
     Dosage: UNK
     Dates: start: 201712
  2. MYCOPHENOLATE MOFETIL. [Suspect]
     Active Substance: MYCOPHENOLATE MOFETIL
     Indication: IMMUNOSUPPRESSANT DRUG THERAPY
     Dosage: UNK
     Dates: start: 201712
  3. ENVARSUS XR [Interacting]
     Active Substance: TACROLIMUS
     Dosage: DOSE REDUCTION AT THE TIME OF FLUCONAZOLE INITIATION
     Dates: start: 201803
  4. FLUCONAZOLE. [Interacting]
     Active Substance: FLUCONAZOLE
     Indication: MENINGITIS CRYPTOCOCCAL
     Dosage: 600 MILLIGRAM, QD
     Dates: start: 201803

REACTIONS (6)
  - Drug level increased [Unknown]
  - Overdose [Unknown]
  - Drug interaction [Unknown]
  - Meningitis cryptococcal [Recovered/Resolved]
  - Central nervous system vasculitis [Recovered/Resolved]
  - Intracranial pressure increased [Recovered/Resolved]

NARRATIVE: CASE EVENT DATE: 2018
